FAERS Safety Report 11686817 (Version 1)
Quarter: 2015Q4

REPORT INFORMATION
  Report Type: Spontaneous
  Country: US (occurrence: US)
  Receive Date: 20151030
  Receipt Date: 20151030
  Transmission Date: 20160304
  Serious: Yes (Other)
  Sender: FDA-Public Use
  Company Number: US-SA-2015SA167135

PATIENT
  Age: 56 Year
  Sex: Female

DRUGS (7)
  1. BABY ASPIRIN [Concomitant]
     Active Substance: ASPIRIN
  2. PANTOPRAZOLE [Concomitant]
     Active Substance: PANTOPRAZOLE SODIUM
  3. SEVELAMER SALT NOT SPECIFIED [Suspect]
     Active Substance: SEVELAMER
     Indication: CHRONIC KIDNEY DISEASE
     Route: 065
  4. DILTIAZEM [Concomitant]
     Active Substance: DILTIAZEM
  5. AMIODARONE [Concomitant]
     Active Substance: AMIODARONE
  6. AROMASIN [Concomitant]
     Active Substance: EXEMESTANE
  7. CARVEDILOL. [Concomitant]
     Active Substance: CARVEDILOL

REACTIONS (9)
  - Gastrointestinal haemorrhage [Recovering/Resolving]
  - Syncope [Unknown]
  - Rectal haemorrhage [Unknown]
  - Dizziness [Unknown]
  - Mucosal inflammation [Unknown]
  - Mucosal ulceration [Unknown]
  - Dyspnoea [Unknown]
  - Colon cancer metastatic [Unknown]
  - Pallor [Unknown]
